FAERS Safety Report 5341372-3 (Version None)
Quarter: 2007Q2

REPORT INFORMATION
  Report Type: 
  Country: None (occurrence: None)
  Receive Date: 20070404
  Receipt Date: 20070205
  Transmission Date: 20071010
  Serious: Yes (Other)
  Sender: FDA-Public Use
  Company Number: 2006138670

PATIENT
  Sex: Female
  Weight: 136.1 kg

DRUGS (16)
  1. GEODON [Suspect]
     Indication: HALLUCINATION
     Dosage: 80 MG (80 MG),ORAL
     Route: 048
  2. GEODON [Suspect]
     Indication: SCHIZOAFFECTIVE DISORDER
     Dosage: 80 MG (80 MG),ORAL
     Route: 048
  3. GEODON [Suspect]
     Indication: WEIGHT DECREASED
     Dosage: 80 MG (80 MG),ORAL
     Route: 048
  4. RISPERDAL [Concomitant]
  5. LORAZEPAM [Concomitant]
  6. SERTRALINE [Concomitant]
  7. CELEBREX [Concomitant]
  8. PRILOSEC [Concomitant]
  9. LASIX [Concomitant]
  10. PREMARIN [Concomitant]
  11. SYNTHROID [Concomitant]
  12. MULTIVITAMIN [Concomitant]
  13. ASPIRIN [Concomitant]
  14. CALCIUM (CALCIUM) [Concomitant]
  15. SULFASALAZINE [Concomitant]
  16. SEROQUEL [Concomitant]

REACTIONS (2)
  - DIARRHOEA [None]
  - NAUSEA [None]
